FAERS Safety Report 15990213 (Version 1)
Quarter: 2019Q1

REPORT INFORMATION
  Report Type: Spontaneous
  Country: JP (occurrence: JP)
  Receive Date: 20190221
  Receipt Date: 20190221
  Transmission Date: 20190418
  Serious: Yes (Death)
  Sender: FDA-Public Use
  Company Number: JP-MYLANLABS-2019M1006446

PATIENT
  Age: 12 Year
  Sex: Female
  Weight: 43 kg

DRUGS (5)
  1. DEXTROMETHORPHAN HYDROBROMIDE. [Suspect]
     Active Substance: DEXTROMETHORPHAN HYDROBROMIDE
     Indication: ANTITUSSIVE THERAPY
     Dosage: 15 MILLIGRAM, TID
     Route: 048
     Dates: start: 20180723, end: 20180724
  2. CLARITHROMYCIN MYLAN [Suspect]
     Active Substance: CLARITHROMYCIN
     Indication: INFECTION
     Dosage: 400 MILLIGRAM, QD
     Route: 048
     Dates: start: 20180723, end: 20180724
  3. CALONAL [Suspect]
     Active Substance: ACETAMINOPHEN
     Indication: ANTIPYRESIS
     Dosage: 200 MILLIGRAM, PRN
     Route: 048
     Dates: start: 20180723, end: 20180724
  4. DOMPERIDONE [Suspect]
     Active Substance: DOMPERIDONE
     Indication: VOMITING
     Dosage: 10 MILLIGRAM, TID (AFTER EACH MEALS)
     Route: 048
     Dates: start: 20180723, end: 20180724
  5. BAYNAS [Suspect]
     Active Substance: RAMATROBAN
     Indication: PRODUCT USED FOR UNKNOWN INDICATION
     Dosage: 75 MILLIGRAM
     Route: 048
     Dates: start: 20180723, end: 20180724

REACTIONS (1)
  - Stevens-Johnson syndrome [Fatal]

NARRATIVE: CASE EVENT DATE: 20180724
